FAERS Safety Report 8697396 (Version 2)
Quarter: 2012Q4

REPORT INFORMATION
  Report Type: 
  Country: US (occurrence: US)
  Receive Date: 20120801
  Receipt Date: 20120919
  Transmission Date: 20130627
  Serious: Yes (Other)
  Sender: FDA-Public Use
  Company Number: US-ALLERGAN-1210216US

PATIENT
  Age: 81 Year
  Sex: Female

DRUGS (2)
  1. ALPHAGAN P [Suspect]
     Indication: RAISED IOP
     Dosage: 2 Gtt, UNK
     Route: 047
     Dates: start: 2010
  2. XALATAN [Concomitant]
     Indication: RAISED IOP
     Dosage: 2 Gtt, UNK
     Route: 047

REACTIONS (5)
  - Bradycardia [Unknown]
  - Road traffic accident [Unknown]
  - Syncope [Unknown]
  - Laceration [Recovered/Resolved]
  - Product dropper issue [None]
